FAERS Safety Report 9853605 (Version 1)
Quarter: 2014Q1

REPORT INFORMATION
  Report Type: Spontaneous
  Country: US (occurrence: US)
  Receive Date: 20140129
  Receipt Date: 20140129
  Transmission Date: 20141002
  Serious: No
  Sender: FDA-Public Use
  Company Number: US-TEVA-459137USA

PATIENT
  Sex: Female

DRUGS (2)
  1. CLARAVIS [Suspect]
     Dosage: 60 MILLIGRAM DAILY;
     Dates: start: 20130717
  2. CLARAVIS [Suspect]
     Dosage: 30 MILLIGRAM DAILY;

REACTIONS (1)
  - Laboratory test abnormal [Unknown]
